FAERS Safety Report 23404769 (Version 2)
Quarter: 2024Q1

REPORT INFORMATION
  Report Type: Spontaneous
  Country: US (occurrence: None)
  Receive Date: 20240116
  Receipt Date: 20240323
  Transmission Date: 20240410
  Serious: No
  Sender: FDA-Public Use
  Company Number: 2024A008432

PATIENT
  Sex: Female

DRUGS (1)
  1. BREZTRI [Suspect]
     Active Substance: BUDESONIDE\FORMOTEROL\GLYCOPYRROLATE
     Dosage: 160.0UG UNKNOWN
     Route: 055

REACTIONS (8)
  - Stress [Unknown]
  - Malaise [Unknown]
  - Illness [Unknown]
  - Product dose omission issue [Unknown]
  - Device dispensing error [Unknown]
  - Product packaging issue [Unknown]
  - Device use issue [Unknown]
  - Incorrect dose administered [Unknown]
